FAERS Safety Report 8160423-4 (Version None)
Quarter: 2012Q1

REPORT INFORMATION
  Report Type: 
  Country: None (occurrence: None)
  Receive Date: 20120223
  Receipt Date: 20120215
  Transmission Date: 20120608
  Serious: Yes (Other)
  Sender: FDA-Public Use
  Company Number: BR-ASTRAZENECA-2012SE10353

PATIENT
  Age: 81 Year
  Sex: Female
  Weight: 44 kg

DRUGS (2)
  1. ATENOLOL [Suspect]
     Indication: HYPERTENSION
     Route: 048
     Dates: end: 20111201
  2. ATACAND HCT [Suspect]
     Indication: HYPERTENSION
     Dosage: 1 CANDESARTAN TABLET AND HALF FELODIPINE TABLET, ONCE A DAY
     Route: 048
     Dates: start: 20111201, end: 20120101

REACTIONS (5)
  - DRUG INEFFECTIVE [None]
  - CEREBROVASCULAR ACCIDENT [None]
  - WRONG TECHNIQUE IN DRUG USAGE PROCESS [None]
  - ARRHYTHMIA [None]
  - BLOOD PRESSURE FLUCTUATION [None]
